FAERS Safety Report 23466967 (Version 1)
Quarter: 2024Q1

REPORT INFORMATION
  Report Type: Spontaneous
  Country: US (occurrence: None)
  Receive Date: 20240131
  Receipt Date: 20240131
  Transmission Date: 20240410
  Serious: No
  Sender: FDA-Public Use
  Company Number: None

PATIENT
  Age: 77 Year
  Sex: Male

DRUGS (1)
  1. AMBRISENTAN [Suspect]
     Active Substance: AMBRISENTAN
     Dosage: FREQUENCY : DAILY;?
     Route: 048

REACTIONS (5)
  - Productive cough [None]
  - Dyspnoea exertional [None]
  - Oxygen saturation decreased [None]
  - Irritable bowel syndrome [None]
  - Memory impairment [None]

NARRATIVE: CASE EVENT DATE: 20240130
